FAERS Safety Report 6441917-6 (Version None)
Quarter: 2009Q4

REPORT INFORMATION
  Report Type: 
  Country: None (occurrence: None)
  Receive Date: 20091113
  Receipt Date: 20091113
  Transmission Date: 20100525
  Serious: Yes (Other)
  Sender: FDA-Public Use
  Company Number: None

PATIENT
  Age: 2 Day
  Sex: Female
  Weight: 2.65 kg

DRUGS (3)
  1. GENTAK [Suspect]
     Indication: OPHTHALMIA NEONATORUM
     Dosage: OPTHALMIC 1X OPHTHALMIC
     Route: 047
  2. GENTAK [Suspect]
     Indication: PROPHYLAXIS
     Dosage: OPTHALMIC 1X OPHTHALMIC
     Route: 047
  3. VITAMIN K TAB [Concomitant]

REACTIONS (2)
  - APPLICATION SITE OEDEMA [None]
  - APPLICATION SITE VESICLES [None]
